FAERS Safety Report 16049838 (Version 1)
Quarter: 2019Q1

REPORT INFORMATION
  Report Type: Spontaneous
  Country: ES (occurrence: ES)
  Receive Date: 20190307
  Receipt Date: 20190307
  Transmission Date: 20190418
  Serious: Yes (Hospitalization, Other)
  Sender: FDA-Public Use
  Company Number: ES-ZYDUS-034498

PATIENT
  Age: 62 Year
  Sex: Male

DRUGS (5)
  1. CLOTIAPINE [Suspect]
     Active Substance: CLOTHIAPINE
     Indication: BIPOLAR DISORDER
     Route: 048
  2. OLANZAPINE. [Suspect]
     Active Substance: OLANZAPINE
     Indication: BIPOLAR DISORDER
     Route: 048
  3. LITHIUM. [Suspect]
     Active Substance: LITHIUM
     Indication: BIPOLAR DISORDER
     Route: 065
  4. HALOPERIDOL. [Suspect]
     Active Substance: HALOPERIDOL
     Indication: BIPOLAR DISORDER
     Route: 048
  5. LITHIUM. [Suspect]
     Active Substance: LITHIUM
     Indication: BIPOLAR DISORDER
     Route: 065

REACTIONS (10)
  - Toxicity to various agents [Unknown]
  - Coordination abnormal [Unknown]
  - Ataxia [Unknown]
  - Dysarthria [Unknown]
  - Dysstasia [Unknown]
  - Muscular weakness [Unknown]
  - Tremor [Unknown]
  - Consciousness fluctuating [Recovered/Resolved]
  - Disorientation [Recovered/Resolved]
  - Hyperreflexia [Unknown]
